FAERS Safety Report 8134238-7 (Version None)
Quarter: 2012Q1

REPORT INFORMATION
  Report Type: 
  Country: None (occurrence: None)
  Receive Date: 20120209
  Receipt Date: 20120131
  Transmission Date: 20120608
  Serious: Yes (Hospitalization, Disabling, Other)
  Sender: FDA-Public Use
  Company Number: 2012MA001354

PATIENT
  Sex: Female
  Weight: 62.1428 kg

DRUGS (11)
  1. METOPROLOL TARTRATE [Concomitant]
  2. KAOPECTATE [Concomitant]
  3. MILK OF MAGNESIA TAB [Concomitant]
  4. ISOPTO ALKALINE [Concomitant]
  5. OMEPRAZOLE [Concomitant]
  6. WARFARIN SODIUM [Concomitant]
  7. ACETAMINOPHEN [Concomitant]
  8. DIGOXIN [Suspect]
     Dosage: 125 MCG;QD;PO
     Route: 048
     Dates: start: 20060301, end: 20091124
  9. COLACE [Concomitant]
  10. ACETAMINOPHEN [Concomitant]
  11. CODEINE [Concomitant]

REACTIONS (29)
  - UNEVALUABLE EVENT [None]
  - WALKING AID USER [None]
  - HYPERTENSION [None]
  - HEMIPLEGIA [None]
  - DROOLING [None]
  - HEART INJURY [None]
  - PULMONARY HYPERTENSION [None]
  - ABDOMINAL PAIN [None]
  - CHEST PAIN [None]
  - HYPERSENSITIVITY [None]
  - CEREBROVASCULAR ACCIDENT [None]
  - VIITH NERVE PARALYSIS [None]
  - MUSCLE SPASMS [None]
  - JAUNDICE [None]
  - DYSARTHRIA [None]
  - ECONOMIC PROBLEM [None]
  - ATRIAL FIBRILLATION [None]
  - WEIGHT DECREASED [None]
  - MITRAL VALVE STENOSIS [None]
  - DIARRHOEA [None]
  - SPEECH DISORDER [None]
  - HEART RATE IRREGULAR [None]
  - PAIN [None]
  - ANXIETY [None]
  - OSTEOARTHRITIS [None]
  - CEREBROVASCULAR DISORDER [None]
  - GAIT DISTURBANCE [None]
  - INTERNATIONAL NORMALISED RATIO ABNORMAL [None]
  - CARDIAC FAILURE CONGESTIVE [None]
